FAERS Safety Report 26122476 (Version 1)
Quarter: 2025Q4

REPORT INFORMATION
  Report Type: Spontaneous
  Country: US (occurrence: US)
  Receive Date: 20251204
  Receipt Date: 20251204
  Transmission Date: 20260118
  Serious: No
  Sender: BIOGEN
  Company Number: US-BIOGEN-2025BI01296708

PATIENT
  Age: 64 Year
  Sex: Male

DRUGS (2)
  1. VUMERITY [Suspect]
     Active Substance: DIROXIMEL FUMARATE
     Indication: Multiple sclerosis
     Dosage: END DATE WAS REPORTED AS 23 SEP 2024 (DISCREPANT)
     Dates: start: 20241226
  2. VUMERITY [Suspect]
     Active Substance: DIROXIMEL FUMARATE
     Dates: start: 20241224

REACTIONS (5)
  - Nasopharyngitis [Not Recovered/Not Resolved]
  - White blood cell count decreased [Unknown]
  - Depressed mood [Unknown]
  - Erythema [Recovered/Resolved]
  - White blood cell count increased [Not Recovered/Not Resolved]

NARRATIVE: CASE EVENT DATE: 20241227
